FAERS Safety Report 16036448 (Version 1)
Quarter: 2019Q1

REPORT INFORMATION
  Report Type: Spontaneous
  Country: US (occurrence: US)
  Receive Date: 20190305
  Receipt Date: 20190305
  Transmission Date: 20190418
  Serious: Yes (Other)
  Sender: FDA-Public Use
  Company Number: US-ALLERGAN-1854576US

PATIENT
  Sex: Female

DRUGS (5)
  1. ESTRACE [Suspect]
     Active Substance: ESTRADIOL
     Indication: VULVOVAGINAL DRYNESS
  2. KLONOPIN [Concomitant]
     Active Substance: CLONAZEPAM
     Dosage: UNK
  3. ESTRACE [Suspect]
     Active Substance: ESTRADIOL
     Indication: URETHRAL DISORDER
     Dosage: STARTED OUT USING A FULL APPLICATOR 3 TIMES PER WEEK AND NOW JUST USED ABOUT 1 INCH ONCE PER WEEK
     Route: 067
     Dates: start: 2007
  4. VITAMINS NOS [Concomitant]
     Active Substance: VITAMINS
     Dosage: UNK
  5. ANTIBIOTICS [Concomitant]
     Active Substance: UNSPECIFIED INGREDIENT
     Indication: URINARY TRACT INFECTION
     Dosage: UNK

REACTIONS (3)
  - Breast cancer [Recovering/Resolving]
  - Therapeutic response unexpected [Unknown]
  - Off label use [Unknown]

NARRATIVE: CASE EVENT DATE: 2017
